FAERS Safety Report 10173229 (Version 1)
Quarter: 2014Q2

REPORT INFORMATION
  Report Type: Spontaneous
  Country: US (occurrence: US)
  Receive Date: 20140515
  Receipt Date: 20140515
  Transmission Date: 20141212
  Serious: No
  Sender: FDA-Public Use
  Company Number: US-PFIZER INC-2014131749

PATIENT
  Age: 47 Year
  Sex: 0

DRUGS (3)
  1. AZITHROMYCIN [Suspect]
     Dosage: UNK
  2. DETROL [Suspect]
     Dosage: UNK
  3. NAPROXEN SODIUM [Suspect]
     Dosage: UNK

REACTIONS (1)
  - Drug hypersensitivity [Unknown]
